FAERS Safety Report 9351644 (Version 1)
Quarter: 2013Q2

REPORT INFORMATION
  Report Type: Spontaneous
  Country: US (occurrence: US)
  Receive Date: 20130617
  Receipt Date: 20130617
  Transmission Date: 20140414
  Serious: No
  Sender: FDA-Public Use
  Company Number: US-UPSHER-SMITH LABORATORIES, INC.-12000743

PATIENT
  Age: 77 Year
  Sex: Female

DRUGS (4)
  1. PACERONE (USL) [Suspect]
     Indication: ATRIOVENTRICULAR BLOCK
     Dosage: 200 MG, QD
     Route: 048
     Dates: start: 20100515
  2. CARVEDILOL [Concomitant]
     Dosage: UNK
  3. ZEMPLAR [Concomitant]
     Dosage: UNK
  4. PRAVASTATIN [Concomitant]
     Dosage: UNK

REACTIONS (2)
  - Blood thyroid stimulating hormone increased [Recovered/Resolved]
  - Vision blurred [Recovering/Resolving]
